FAERS Safety Report 15130649 (Version 26)
Quarter: 2020Q4

REPORT INFORMATION
  Report Type: Spontaneous
  Country: CA (occurrence: CA)
  Receive Date: 20180711
  Receipt Date: 20201123
  Transmission Date: 20210113
  Serious: Yes (Other)
  Sender: FDA-Public Use
  Company Number: CA-CELLTRION INC.-2018CA018417

PATIENT

DRUGS (32)
  1. INFLECTRA [Suspect]
     Active Substance: INFLIXIMAB-DYYB
     Dosage: 500 MG, 0, 2, 6 WEEKS, THEN EVERY 8 WEEKS)
     Route: 042
     Dates: start: 20180215
  2. INFLECTRA [Suspect]
     Active Substance: INFLIXIMAB-DYYB
     Dosage: 500 MG, 0, 2, 6 WEEKS, THEN EVERY 8 WEEKS)
     Route: 042
     Dates: start: 20180316
  3. INFLECTRA [Suspect]
     Active Substance: INFLIXIMAB-DYYB
     Dosage: 10 MG/KG,  EVERY 8 WEEKS
     Route: 042
     Dates: start: 20180703, end: 20181109
  4. INFLECTRA [Suspect]
     Active Substance: INFLIXIMAB-DYYB
     Dosage: 10 MG/KG,  EVERY 8 WEEKS
     Route: 042
     Dates: start: 20181109
  5. ASPIRIN. [Concomitant]
     Active Substance: ASPIRIN
     Dosage: UNK
     Route: 065
  6. INFLECTRA [Suspect]
     Active Substance: INFLIXIMAB-DYYB
     Dosage: 10 MG/KG,  EVERY 8 WEEKS
     Route: 042
     Dates: start: 20180703
  7. INFLECTRA [Suspect]
     Active Substance: INFLIXIMAB-DYYB
     Dosage: 10 MG/KG,  EVERY 8 WEEKS
     Route: 042
     Dates: start: 20180703
  8. INFLECTRA [Suspect]
     Active Substance: INFLIXIMAB-DYYB
     Dosage: 1000 MG, MONTHLY (EVERY 4 WEEKS)
     Route: 042
     Dates: start: 20190215
  9. INFLECTRA [Suspect]
     Active Substance: INFLIXIMAB-DYYB
     Dosage: 1000 MG, MONTHLY (EVERY 4 WEEKS)
     Route: 042
     Dates: start: 20191025
  10. INFLECTRA [Suspect]
     Active Substance: INFLIXIMAB-DYYB
     Dosage: 1000 MG, MONTHLY (EVERY 4 WEEKS)
     Route: 042
     Dates: start: 20200609
  11. INFLECTRA [Suspect]
     Active Substance: INFLIXIMAB-DYYB
     Dosage: 10 MG/KG,  EVERY 8 WEEKS
     Route: 042
     Dates: start: 20181005
  12. INFLECTRA [Suspect]
     Active Substance: INFLIXIMAB-DYYB
     Dosage: 1000 MG, MONTHLY (EVERY 4 WEEKS)
     Route: 042
     Dates: start: 20181212
  13. INFLECTRA [Suspect]
     Active Substance: INFLIXIMAB-DYYB
     Dosage: 1000 MG, MONTHLY (EVERY 4 WEEKS)
     Route: 042
     Dates: start: 20190509
  14. INFLECTRA [Suspect]
     Active Substance: INFLIXIMAB-DYYB
     Dosage: 1000 MG, MONTHLY (EVERY 4 WEEKS)
     Route: 042
     Dates: start: 20190627
  15. HYDROMORPHONE [Concomitant]
     Active Substance: HYDROMORPHONE
     Dosage: UNK
     Route: 065
  16. INFLECTRA [Suspect]
     Active Substance: INFLIXIMAB-DYYB
     Dosage: 10 MG/KG,  EVERY 8 WEEKS
     Route: 042
     Dates: start: 20180703
  17. NITRO [Concomitant]
     Active Substance: NITROGLYCERIN
     Dosage: UNK
     Route: 065
  18. INFLECTRA [Suspect]
     Active Substance: INFLIXIMAB-DYYB
     Dosage: 1000 MG, MONTHLY (EVERY 4 WEEKS)
     Route: 042
     Dates: start: 20190314
  19. INFLECTRA [Suspect]
     Active Substance: INFLIXIMAB-DYYB
     Dosage: 1000 MG, MONTHLY (EVERY 4 WEEKS)
     Route: 042
     Dates: start: 20200916
  20. INFLECTRA [Suspect]
     Active Substance: INFLIXIMAB-DYYB
     Dosage: 1000 MG, MONTHLY (EVERY 4 WEEKS)
     Route: 042
     Dates: start: 20201113
  21. FOLIC ACID. [Concomitant]
     Active Substance: FOLIC ACID
     Dosage: UNK
     Route: 065
  22. INFLECTRA [Suspect]
     Active Substance: INFLIXIMAB-DYYB
     Dosage: 1000 MG, MONTHLY (EVERY 4 WEEKS)
     Route: 042
     Dates: start: 20190724
  23. INFLECTRA [Suspect]
     Active Substance: INFLIXIMAB-DYYB
     Dosage: 1000 MG, MONTHLY (EVERY 4 WEEKS)
     Route: 042
     Dates: start: 20190823
  24. INFLECTRA [Suspect]
     Active Substance: INFLIXIMAB-DYYB
     Dosage: 1000 MG, MONTHLY (EVERY 4 WEEKS)
     Route: 042
     Dates: start: 20191127
  25. INFLECTRA [Suspect]
     Active Substance: INFLIXIMAB-DYYB
     Dosage: 1000 MG, MONTHLY (EVERY 4 WEEKS)
     Route: 042
     Dates: start: 20200724
  26. METHOTREXATE. [Concomitant]
     Active Substance: METHOTREXATE
     Dosage: UNK
     Route: 065
     Dates: start: 2014
  27. CORTISONE [Concomitant]
     Active Substance: CORTISONE
     Dosage: UNK
     Route: 065
  28. INFLECTRA [Suspect]
     Active Substance: INFLIXIMAB-DYYB
     Dosage: 10 MG/KG,  EVERY 8 WEEKS
     Route: 042
     Dates: start: 20180703
  29. INFLECTRA [Suspect]
     Active Substance: INFLIXIMAB-DYYB
     Dosage: 1000 MG, MONTHLY (EVERY 4 WEEKS)
     Route: 042
     Dates: start: 20190115
  30. INFLECTRA [Suspect]
     Active Substance: INFLIXIMAB-DYYB
     Dosage: 1000 MG, MONTHLY (EVERY 4 WEEKS)
     Route: 042
     Dates: start: 20200212
  31. INFLECTRA [Suspect]
     Active Substance: INFLIXIMAB-DYYB
     Indication: CROHN^S DISEASE
     Dosage: 500 MG, 0, 2, 6 WEEKS, THEN EVERY 8 WEEKS)
     Route: 042
     Dates: start: 20180201, end: 20180511
  32. INFLECTRA [Suspect]
     Active Substance: INFLIXIMAB-DYYB
     Dosage: 500 MG, 0, 2, 6 WEEKS, THEN EVERY 8 WEEKS)
     Route: 042
     Dates: start: 20180511, end: 20180511

REACTIONS (31)
  - Condition aggravated [Recovered/Resolved]
  - Feeding disorder [Recovered/Resolved]
  - Intentional product use issue [Unknown]
  - Anxiety [Unknown]
  - Productive cough [Unknown]
  - Off label use [Unknown]
  - Pain [Recovered/Resolved]
  - Dysuria [Unknown]
  - Dizziness [Unknown]
  - Skin discolouration [Unknown]
  - Arthralgia [Unknown]
  - Anal fissure [Unknown]
  - Pallor [Unknown]
  - Nausea [Unknown]
  - Erythema [Unknown]
  - Heart rate increased [Unknown]
  - Urinary tract infection [Not Recovered/Not Resolved]
  - Influenza like illness [Not Recovered/Not Resolved]
  - Inappropriate schedule of product administration [Unknown]
  - Incorrect dose administered [Unknown]
  - Off label use [Unknown]
  - Chest pain [Recovered/Resolved]
  - Fatigue [Unknown]
  - Aphthous ulcer [Unknown]
  - Sputum discoloured [Unknown]
  - Headache [Not Recovered/Not Resolved]
  - Nasal congestion [Recovered/Resolved]
  - Oropharyngeal pain [Not Recovered/Not Resolved]
  - Pyrexia [Recovered/Resolved]
  - Malaise [Unknown]
  - Rhinorrhoea [Unknown]

NARRATIVE: CASE EVENT DATE: 20180201
